FAERS Safety Report 11797067 (Version 3)
Quarter: 2016Q1

REPORT INFORMATION
  Report Type: Spontaneous
  Country: US (occurrence: US)
  Receive Date: 20151203
  Receipt Date: 20160226
  Transmission Date: 20160525
  Serious: Yes (Other)
  Sender: FDA-Public Use
  Company Number: US-PFIZER INC-2015411101

PATIENT
  Age: 48 Year
  Sex: Female
  Weight: 62 kg

DRUGS (5)
  1. CAMPTOSAR [Suspect]
     Active Substance: IRINOTECAN HYDROCHLORIDE
     Indication: COLON CANCER STAGE IV
     Dosage: UNKNOWN DOSE EVERY OTHER WEEK OR EVERY 14 DAY
     Route: 042
     Dates: start: 201505, end: 2015
  2. 5 FU [Concomitant]
     Active Substance: FLUOROURACIL
     Indication: COLON CANCER
     Dosage: UNK
     Dates: start: 201506, end: 201512
  3. CAMPTOSAR [Suspect]
     Active Substance: IRINOTECAN HYDROCHLORIDE
     Dosage: UNK (BI-WEEKLY)
     Route: 042
     Dates: start: 20150608, end: 20151210
  4. FOLFIRI [Concomitant]
     Active Substance: FLUOROURACIL\IRINOTECAN\LEUCOVORIN
     Dosage: UNK
  5. LEUCOVORIN CALCIUM. [Concomitant]
     Active Substance: LEUCOVORIN CALCIUM
     Indication: COLON CANCER
     Dosage: UNK
     Dates: start: 201506, end: 201512

REACTIONS (11)
  - Salivary hypersecretion [Recovered/Resolved]
  - Dry eye [Unknown]
  - Choking [Recovered/Resolved]
  - Rhinorrhoea [Recovered/Resolved]
  - Nausea [Unknown]
  - Lacrimation increased [Not Recovered/Not Resolved]
  - Eye discharge [Recovered/Resolved]
  - White blood cell disorder [Unknown]
  - Ocular hyperaemia [Unknown]
  - Vomiting [Recovered/Resolved]
  - Mucosal inflammation [Unknown]

NARRATIVE: CASE EVENT DATE: 201506
